FAERS Safety Report 16358672 (Version 1)
Quarter: 2019Q2

REPORT INFORMATION
  Report Type: Spontaneous
  Country: US (occurrence: US)
  Receive Date: 20190527
  Receipt Date: 20190527
  Transmission Date: 20190711
  Serious: Yes (Other)
  Sender: FDA-Public Use
  Company Number: US-BRISTOL-MYERS SQUIBB COMPANY-BMS-2019-047248

PATIENT
  Age: 54 Year
  Sex: Male

DRUGS (3)
  1. MEGACE [Suspect]
     Active Substance: MEGESTROL ACETATE
     Indication: WEIGHT INCREASED
     Dosage: TWO CAPSULES
     Route: 048
     Dates: start: 2018
  2. CRESTOR [Concomitant]
     Active Substance: ROSUVASTATIN CALCIUM
     Indication: PRODUCT USED FOR UNKNOWN INDICATION
     Route: 065
  3. MEGACE [Suspect]
     Active Substance: MEGESTROL ACETATE
     Indication: HIV INFECTION
     Route: 065

REACTIONS (6)
  - Sensory disturbance [Unknown]
  - Deep vein thrombosis [Unknown]
  - Disturbance in attention [Unknown]
  - Suicidal ideation [Unknown]
  - Depression [Unknown]
  - Blood cholesterol decreased [Unknown]

NARRATIVE: CASE EVENT DATE: 201904
